FAERS Safety Report 8181599-9 (Version None)
Quarter: 2012Q1

REPORT INFORMATION
  Report Type: 
  Country: None (occurrence: None)
  Receive Date: 20120302
  Receipt Date: 20120222
  Transmission Date: 20120608
  Serious: Yes (Hospitalization)
  Sender: FDA-Public Use
  Company Number: RU-ASTRAZENECA-2012SE13097

PATIENT
  Age: 77 Year
  Sex: Female

DRUGS (2)
  1. SODIUM CHLORIDE [Concomitant]
  2. MEROPENEM [Suspect]
     Route: 042

REACTIONS (4)
  - PYREXIA [None]
  - DRUG INEFFECTIVE [None]
  - HYPERTHERMIA [None]
  - PNEUMONIA [None]
